FAERS Safety Report 9980830 (Version 1)
Quarter: 2014Q1

REPORT INFORMATION
  Report Type: Spontaneous
  Country: US (occurrence: US)
  Receive Date: 20140307
  Receipt Date: 20140307
  Transmission Date: 20141002
  Serious: Yes (Hospitalization)
  Sender: FDA-Public Use
  Company Number: US-BAYER-2014-030320

PATIENT
  Age: 82 Year
  Sex: Female

DRUGS (6)
  1. AVELOX [Suspect]
     Dosage: 400 MG, QD
  2. AVELOX I.V. [Suspect]
     Dosage: UNK
  3. AFLURIA [Suspect]
     Indication: ANTIVIRAL PROPHYLAXIS
  4. ADVAIR [Concomitant]
  5. DUONEB [Concomitant]
  6. OXYGEN [Concomitant]

REACTIONS (14)
  - Malaise [None]
  - Injection site pain [None]
  - Electrolyte depletion [None]
  - Hypokalaemia [None]
  - Hyponatraemia [None]
  - Dizziness [None]
  - Pain in extremity [None]
  - Musculoskeletal pain [None]
  - Burning sensation [None]
  - Muscular weakness [None]
  - Heart rate increased [None]
  - Contusion [None]
  - Dyspnoea [None]
  - Vomiting [None]
